FAERS Safety Report 11065781 (Version 1)
Quarter: 2015Q2

REPORT INFORMATION
  Report Type: Spontaneous
  Country: US (occurrence: None)
  Receive Date: 20150423
  Receipt Date: 20150423
  Transmission Date: 20150821
  Serious: Yes (Hospitalization)
  Sender: FDA-Public Use
  Company Number: 20150208

PATIENT
  Age: 64 Year
  Sex: Male

DRUGS (8)
  1. ALGOCALMINE [Suspect]
     Active Substance: METAMIZOLE SODIUM
     Indication: PAIN
     Route: 048
  2. MELOXICAM. [Suspect]
     Active Substance: MELOXICAM
     Dosage: 2 VIALS PER DAYT
     Route: 051
  3. BISEPTOL [Suspect]
     Active Substance: SULFAMETHOXAZOLE\TRIMETHOPRIM
     Indication: URINARY TRACT INFECTION
     Dosage: 3 TABLET
  4. PIROXICAM. [Suspect]
     Active Substance: PIROXICAM
  5. KETOROLAC TROMETHAMINE INJECTION, USP (0601-25) 15 MG/ML [Suspect]
     Active Substance: KETOROLAC TROMETHAMINE
     Indication: PAIN
     Dosage: 2 VIALS PER DAY
  6. ANTINEVRALGIC [Suspect]
     Active Substance: ASPIRIN\CAFFEINE\PHENACETIN
     Indication: PAIN
  7. CELECOXIB. [Suspect]
     Active Substance: CELECOXIB
     Indication: PAIN
  8. IBUPROFEN. [Suspect]
     Active Substance: IBUPROFEN

REACTIONS (2)
  - Rhabdomyolysis [None]
  - Drug interaction [None]
